FAERS Safety Report 7508674-3 (Version None)
Quarter: 2011Q2

REPORT INFORMATION
  Report Type: 
  Country: None (occurrence: None)
  Receive Date: 20110527
  Receipt Date: 20100610
  Transmission Date: 20111010
  Serious: No
  Sender: FDA-Public Use
  Company Number: A0864315A

PATIENT
  Age: 62 Year
  Sex: Female

DRUGS (4)
  1. ADVAIR DISKUS 100/50 [Concomitant]
  2. ALBUTEROL SULFATE AUTOHALER [Concomitant]
     Route: 055
  3. VENTOLIN [Suspect]
     Indication: CHRONIC OBSTRUCTIVE PULMONARY DISEASE
     Dosage: 2PUFF TWICE PER DAY
     Route: 055
     Dates: start: 20100301
  4. SPIRIVA [Concomitant]

REACTIONS (4)
  - CONDITION AGGRAVATED [None]
  - WEIGHT INCREASED [None]
  - WHEEZING [None]
  - PRODUCT QUALITY ISSUE [None]
